FAERS Safety Report 23574440 (Version 3)
Quarter: 2025Q1

REPORT INFORMATION
  Report Type: Report from Study
  Country: CA (occurrence: CA)
  Receive Date: 20240228
  Receipt Date: 20250109
  Transmission Date: 20250408
  Serious: Yes (Other)
  Sender: JOHNSON AND JOHNSON
  Company Number: CA-JNJFOC-20240111765

PATIENT
  Age: 36 Year
  Sex: Male
  Weight: 72 kg

DRUGS (3)
  1. REMICADE [Suspect]
     Active Substance: INFLIXIMAB
     Indication: Ankylosing spondylitis
     Route: 041
  2. REMICADE [Suspect]
     Active Substance: INFLIXIMAB
     Dosage: EXPIRY DATE- FEB-2026
     Route: 041
     Dates: start: 20240208
  3. CANDESARTAN [Concomitant]
     Active Substance: CANDESARTAN

REACTIONS (9)
  - Pruritus [Recovered/Resolved]
  - Pruritus [Recovered/Resolved]
  - Ear discomfort [Recovered/Resolved]
  - Paraesthesia oral [Recovered/Resolved]
  - Urticaria [Not Recovered/Not Resolved]
  - Oropharyngeal pain [Recovered/Resolved]
  - Chest discomfort [Recovered/Resolved]
  - Infusion related reaction [Recovered/Resolved]
  - Off label use [Unknown]
